FAERS Safety Report 12602635 (Version 1)
Quarter: 2016Q3

REPORT INFORMATION
  Report Type: Spontaneous
  Country: CN (occurrence: CN)
  Receive Date: 20160728
  Receipt Date: 20160728
  Transmission Date: 20161109
  Serious: Yes (Other)
  Sender: FDA-Public Use
  Company Number: CN-GLAXOSMITHKLINE-CN2016GSK106108

PATIENT
  Age: 81 Year
  Sex: Male

DRUGS (4)
  1. VOLTAREN [Suspect]
     Active Substance: DICLOFENAC SODIUM
     Indication: SCIATICA
     Dosage: 25 MG, BID
     Dates: start: 20151228, end: 20160104
  2. AMLODIPINE BESILATE [Concomitant]
     Active Substance: AMLODIPINE BESYLATE
     Dosage: UNK
     Dates: start: 20151231, end: 20160111
  3. METHYCOBAL [Concomitant]
     Active Substance: METHYLCOBALAMIN
     Dosage: UNK
     Dates: start: 20151231, end: 20160111
  4. LIPITOR [Concomitant]
     Active Substance: ATORVASTATIN CALCIUM

REACTIONS (1)
  - Haematochezia [Recovering/Resolving]

NARRATIVE: CASE EVENT DATE: 20151231
